FAERS Safety Report 4606126-1 (Version None)
Quarter: 2005Q2

REPORT INFORMATION
  Report Type: 
  Country: None (occurrence: None)
  Receive Date: 20050303
  Receipt Date: 20041121
  Transmission Date: 20051028
  Serious: Yes (Other)
  Sender: FDA-Public Use
  Company Number: 200421056BWH

PATIENT
  Sex: Male

DRUGS (2)
  1. LEVITRA [Suspect]
     Dates: start: 20041120
  2. VIAGRA [Concomitant]

REACTIONS (2)
  - DYSURIA [None]
  - ERECTION INCREASED [None]
